FAERS Safety Report 6600095-0 (Version None)
Quarter: 2010Q1

REPORT INFORMATION
  Report Type: 
  Country: None (occurrence: None)
  Receive Date: 20100217
  Receipt Date: 20100125
  Transmission Date: 20100710
  Serious: Yes (Other)
  Sender: FDA-Public Use
  Company Number: 1-21432774

PATIENT
  Age: 75 Year
  Sex: Male

DRUGS (2)
  1. LEVETIRACETAM [Suspect]
     Indication: CONVULSION
     Dosage: UP TO 1 G PER DAY, ORAL
     Route: 048
  2. CLOPIDOGREL [Concomitant]

REACTIONS (3)
  - CEREBRAL AMYLOID ANGIOPATHY [None]
  - CEREBRAL HAEMORRHAGE [None]
  - PLATELET DISORDER [None]
